FAERS Safety Report 8570782-6 (Version None)
Quarter: 2012Q3

REPORT INFORMATION
  Report Type: 
  Country: None (occurrence: None)
  Receive Date: 20120806
  Receipt Date: 20120801
  Transmission Date: 20120928
  Serious: Yes (Other)
  Sender: FDA-Public Use
  Company Number: US-AMGEN-USASP2012048212

PATIENT

DRUGS (6)
  1. VINCRISTINE [Concomitant]
     Indication: MANTLE CELL LYMPHOMA
  2. RITUXAN [Concomitant]
     Indication: MANTLE CELL LYMPHOMA
     Dosage: UNK
  3. CYCLOPHOSPHAMIDE [Concomitant]
     Indication: MANTLE CELL LYMPHOMA
  4. NEULASTA [Suspect]
     Indication: NEUTROPENIA
     Dosage: UNK
     Dates: start: 20120727
  5. DOXORUBICIN HYDROCHLORIDE [Concomitant]
     Indication: MANTLE CELL LYMPHOMA
  6. DEXAMETHASONE [Concomitant]
     Indication: MANTLE CELL LYMPHOMA

REACTIONS (3)
  - CELLULITIS [None]
  - WHITE BLOOD CELL DISORDER [None]
  - SEPSIS [None]
